FAERS Safety Report 4877873-1 (Version None)
Quarter: 2006Q1

REPORT INFORMATION
  Report Type: 
  Country: None (occurrence: None)
  Receive Date: 20060109
  Receipt Date: 20051227
  Transmission Date: 20060701
  Serious: Yes (Other)
  Sender: FDA-Public Use
  Company Number: 2006000461

PATIENT
  Age: 65 Year
  Sex: Male

DRUGS (5)
  1. LIPITOR [Suspect]
     Indication: CARDIAC DISORDER
     Dosage: (10 MG) , ORAL
     Route: 048
     Dates: start: 20050301
  2. ACCUPRIL [Concomitant]
  3. METOPROLOL (METOPROLOL) [Concomitant]
  4. GLYBURIDE [Concomitant]
  5. ECOTRIN (ACETYLSALICYLIC ACID) [Concomitant]

REACTIONS (4)
  - CARDIAC DISORDER [None]
  - CARDIAC PACEMAKER INSERTION [None]
  - IMPLANTABLE DEFIBRILLATOR INSERTION [None]
  - WEIGHT DECREASED [None]
